FAERS Safety Report 21302893 (Version 1)
Quarter: 2022Q3

REPORT INFORMATION
  Report Type: Spontaneous
  Country: IN (occurrence: IN)
  Receive Date: 20220907
  Receipt Date: 20220907
  Transmission Date: 20221027
  Serious: Yes (Death, Other)
  Sender: FDA-Public Use
  Company Number: IN-PFIZER INC-2020194761

PATIENT
  Age: 54 Year
  Sex: Female
  Weight: 53 kg

DRUGS (6)
  1. SUTENT [Suspect]
     Active Substance: SUNITINIB MALATE
     Indication: Gastrointestinal stromal tumour
     Dosage: 37.5 MG, CYCLIC (ONCE A DAY, 2 WEEKS ON AND 1 WEEK OFF)
     Route: 048
     Dates: start: 20200508
  2. PYRIDOXINE HYDROCHLORIDE [Concomitant]
     Active Substance: PYRIDOXINE HYDROCHLORIDE
     Dosage: 1-0-0 FOR 3 MONTHS
  3. COTARYL [Concomitant]
     Dosage: UNK, CYCLIC, 0-0-1 X 28 DAYS
  4. ZINCOVIT C [Concomitant]
     Dosage: 0-1-0 FOR 28 DAYS
  5. ZINMAX [Concomitant]
     Dosage: UNK
  6. ZYTEE [BENZALKONIUM CHLORIDE;CHOLINE SALICYLATE] [Concomitant]
     Dosage: UNK

REACTIONS (5)
  - Death [Fatal]
  - Hypothyroidism [Unknown]
  - Weight increased [Unknown]
  - Pain [Recovering/Resolving]
  - Neoplasm progression [Unknown]

NARRATIVE: CASE EVENT DATE: 20200101
